FAERS Safety Report 12138447 (Version 4)
Quarter: 2016Q2

REPORT INFORMATION
  Report Type: Spontaneous
  Country: US (occurrence: US)
  Receive Date: 20160302
  Receipt Date: 20160502
  Transmission Date: 20160815
  Serious: No
  Sender: FDA-Public Use
  Company Number: US-PFIZER INC-2016064421

PATIENT
  Age: 63 Year
  Sex: Female

DRUGS (2)
  1. ATORVASTATIN [Concomitant]
     Active Substance: ATORVASTATIN
     Dosage: UNK
  2. XELJANZ [Suspect]
     Active Substance: TOFACITINIB CITRATE
     Indication: RHEUMATOID ARTHRITIS
     Dosage: 5 MG, 2X/DAY
     Route: 048

REACTIONS (8)
  - Oropharyngeal pain [Unknown]
  - Rhinorrhoea [Unknown]
  - Decreased appetite [Unknown]
  - Dizziness [Unknown]
  - Cough [Unknown]
  - Dyspepsia [Unknown]
  - Nausea [Unknown]
  - Paraesthesia [Unknown]
